FAERS Safety Report 25930724 (Version 1)
Quarter: 2025Q4

REPORT INFORMATION
  Report Type: Spontaneous
  Country: US (occurrence: US)
  Receive Date: 20251016
  Receipt Date: 20251016
  Transmission Date: 20260118
  Serious: Yes (Hospitalization)
  Sender: TEVA
  Company Number: US-TEVA-VS-3382902

PATIENT
  Age: 68 Year
  Sex: Female

DRUGS (2)
  1. TRIAMCINOLONE [Suspect]
     Active Substance: TRIAMCINOLONE
     Indication: Pruritus
     Dosage: SEVERAL COURSES
     Route: 030
  2. DUPILUMAB [Concomitant]
     Active Substance: DUPILUMAB
     Indication: Pruritus
     Route: 065

REACTIONS (2)
  - Hyperglycaemia [Unknown]
  - Sepsis [Unknown]
